FAERS Safety Report 6126435-7 (Version None)
Quarter: 2009Q1

REPORT INFORMATION
  Report Type: 
  Country: None (occurrence: None)
  Receive Date: 20090320
  Receipt Date: 20090311
  Transmission Date: 20090719
  Serious: Yes (Hospitalization)
  Sender: FDA-Public Use
  Company Number: DE-ELI_LILLY_AND_COMPANY-DE200902000397

PATIENT
  Age: 83 Year
  Sex: Female

DRUGS (14)
  1. CYMBALTA [Suspect]
     Indication: DEPRESSION
     Dosage: 30 MG, DAILY (1/D)
     Route: 048
     Dates: start: 20081117
  2. CYMBALTA [Interacting]
     Dosage: 60 MG, DAILY (1/D)
     Route: 048
     Dates: start: 20081121
  3. CYMBALTA [Interacting]
     Dosage: 90 MG, DAILY (1/D)
     Route: 048
     Dates: start: 20081201
  4. CIPROFLOXACIN [Concomitant]
     Dosage: UNK, UNKNOWN
     Route: 065
  5. EXELON [Concomitant]
     Dosage: UNK, UNKNOWN
     Route: 065
     Dates: end: 20081218
  6. SEROQUEL [Concomitant]
  7. NEXIUM [Concomitant]
  8. LASIX [Concomitant]
  9. ATACAND [Concomitant]
     Dosage: 8 MG, UNK
  10. ATACAND [Concomitant]
     Dosage: 12.5 MG, UNK
  11. PREDNISOLONE [Concomitant]
     Dosage: 7.5 MG, UNK
     Route: 048
  12. EVISTA [Concomitant]
     Dosage: 1 D/F, UNK
  13. AERIUS [Concomitant]
     Dosage: 5 MG, UNK
  14. ATARAX [Concomitant]
     Dosage: 25 MG, UNK
     Route: 048

REACTIONS (8)
  - CHOLELITHIASIS [None]
  - DRUG INTERACTION [None]
  - ELECTROCARDIOGRAM ST SEGMENT DEPRESSION [None]
  - GALLBLADDER POLYP [None]
  - GASTRITIS [None]
  - HIATUS HERNIA [None]
  - PANCREATITIS [None]
  - THYROID MASS [None]
